FAERS Safety Report 25706334 (Version 1)
Quarter: 2025Q3

REPORT INFORMATION
  Report Type: Spontaneous
  Country: US (occurrence: US)
  Receive Date: 20250820
  Receipt Date: 20250820
  Transmission Date: 20251021
  Serious: No
  Sender: CATALYST PHARMA
  Company Number: US-CATALYST PHARMACEUTICALS-US-CATA-25-00785

PATIENT
  Age: 5 Year
  Sex: Male
  Weight: 24.49 kg

DRUGS (5)
  1. AGAMREE [Suspect]
     Active Substance: VAMOROLONE
     Indication: Duchenne muscular dystrophy
     Dosage: 2.9 ML DAILY
     Route: 048
     Dates: start: 20240316
  2. AGAMREE [Suspect]
     Active Substance: VAMOROLONE
     Dosage: 3 ML DAILY
     Route: 048
     Dates: start: 20240906
  3. AGAMREE [Suspect]
     Active Substance: VAMOROLONE
     Dosage: 1.8 ML DAILY
     Route: 048
     Dates: start: 20241004
  4. AGAMREE [Suspect]
     Active Substance: VAMOROLONE
     Dosage: 2 ML DAILY
     Route: 048
     Dates: start: 20250108
  5. DUVYZAT [Concomitant]
     Active Substance: GIVINOSTAT
     Indication: Muscular dystrophy
     Dosage: 2.5 ML DAILY
     Route: 065

REACTIONS (1)
  - Influenza [Recovered/Resolved]

NARRATIVE: CASE EVENT DATE: 20250519
